FAERS Safety Report 16899983 (Version 1)
Quarter: 2019Q4

REPORT INFORMATION
  Report Type: Spontaneous
  Country: US (occurrence: US)
  Receive Date: 20191009
  Receipt Date: 20191009
  Transmission Date: 20200122
  Serious: Yes (Other)
  Sender: FDA-Public Use
  Company Number: US-AMERICAN REGENT INC-2019002153

PATIENT
  Age: 21 Year
  Sex: Male

DRUGS (12)
  1. VALACYCLOVIR [Concomitant]
     Active Substance: VALACYCLOVIR HYDROCHLORIDE
     Indication: NECROTISING HERPETIC RETINOPATHY
  2. ACYCLOVIR                          /00587301/ [Concomitant]
     Active Substance: ACYCLOVIR
     Indication: SERPIGINOUS CHOROIDITIS
  3. GANCICLOVIR INJECTION (0517-1945-01) [Concomitant]
     Active Substance: GANCICLOVIR
     Indication: NECROTISING HERPETIC RETINOPATHY
  4. ACYCLOVIR                          /00587301/ [Concomitant]
     Active Substance: ACYCLOVIR
     Indication: NECROTISING RETINITIS
     Route: 042
  5. PREDNISONE. [Concomitant]
     Active Substance: PREDNISONE
     Indication: RETINAL PIGMENT EPITHELIOPATHY
     Dosage: 80 MILLIGRAM, QD
     Route: 048
  6. VALACYCLOVIR [Concomitant]
     Active Substance: VALACYCLOVIR HYDROCHLORIDE
     Indication: SERPIGINOUS CHOROIDITIS
  7. TRIAMCINOLONE [Concomitant]
     Active Substance: TRIAMCINOLONE
     Indication: RETINAL PIGMENT EPITHELIOPATHY
     Dosage: UNK, IN THE LEFT EYE
  8. VALACYCLOVIR [Concomitant]
     Active Substance: VALACYCLOVIR HYDROCHLORIDE
     Indication: NECROTISING RETINITIS
     Dosage: 1 GRAM, BID
     Route: 048
  9. GANCICLOVIR INJECTION (0517-1945-01) [Concomitant]
     Active Substance: GANCICLOVIR
     Indication: NECROTISING RETINITIS
     Dosage: UNK
  10. MANNITOL INJECTION, USP (4050-25) [Suspect]
     Active Substance: MANNITOL
     Indication: BRAIN OEDEMA
     Dosage: UNK
     Route: 042
  11. HYPERTONIC SALINE SOLUTION [Suspect]
     Active Substance: SODIUM CHLORIDE
     Indication: BRAIN OEDEMA
     Dosage: UNK
     Route: 042
  12. ACYCLOVIR                          /00587301/ [Concomitant]
     Active Substance: ACYCLOVIR
     Indication: NECROTISING HERPETIC RETINOPATHY

REACTIONS (3)
  - Brain oedema [Not Recovered/Not Resolved]
  - Brain death [Not Recovered/Not Resolved]
  - Drug ineffective [Not Recovered/Not Resolved]
